FAERS Safety Report 24968757 (Version 1)
Quarter: 2025Q1

REPORT INFORMATION
  Report Type: Report from Study
  Country: US (occurrence: US)
  Receive Date: 20250214
  Receipt Date: 20250214
  Transmission Date: 20250409
  Serious: No
  Sender: AMNEAL
  Company Number: US-AMNEAL PHARMACEUTICALS-2024-AMRX-02059

PATIENT
  Sex: Female
  Weight: 69.388 kg

DRUGS (2)
  1. CARBIDOPA\LEVODOPA [Suspect]
     Active Substance: CARBIDOPA\LEVODOPA
     Indication: Parkinson^s disease
     Route: 048
     Dates: start: 20230921
  2. CARBIDOPA\LEVODOPA [Suspect]
     Active Substance: CARBIDOPA\LEVODOPA
     Dosage: 1 CAPSULES, (48.75MG-195MG) 5 /DAY AND 1 CAPSULE EVERY 3 HOURS AND IF NEEDED MAY TAKE ANOTHER CAPSUL
     Route: 048
     Dates: start: 20240705

REACTIONS (1)
  - Tremor [Not Recovered/Not Resolved]
